FAERS Safety Report 8984947 (Version 1)
Quarter: 2012Q4

REPORT INFORMATION
  Report Type: 
  Country: CN (occurrence: CN)
  Receive Date: 20121226
  Receipt Date: 20121226
  Transmission Date: 20130627
  Serious: Yes (Hospitalization)
  Sender: FDA-Public Use
  Company Number: CN-BAYER-2012-133587

PATIENT
  Age: 74 Year
  Sex: Male
  Weight: 66 kg

DRUGS (3)
  1. ACARBOSE [Suspect]
     Dosage: 50 mg, TID
     Route: 048
  2. INSULIN HUMAN [Suspect]
     Dosage: 8 iu, QD
     Route: 058
  3. NATEGLINIDE [Concomitant]
     Dosage: 60 mg, TID

REACTIONS (6)
  - Hypoglycaemia [None]
  - Weight decreased [Recovering/Resolving]
  - Cachexia [Recovering/Resolving]
  - Blood glucose fluctuation [None]
  - Palpitations [None]
  - Hyperhidrosis [None]
